FAERS Safety Report 23907967 (Version 2)
Quarter: 2024Q2

REPORT INFORMATION
  Report Type: Spontaneous
  Country: US (occurrence: US)
  Receive Date: 20240528
  Receipt Date: 20240614
  Transmission Date: 20240715
  Serious: Yes (Other)
  Sender: FDA-Public Use
  Company Number: US-TORRENT-00013581

PATIENT
  Sex: Female

DRUGS (1)
  1. ESCITALOPRAM [Suspect]
     Active Substance: ESCITALOPRAM OXALATE
     Indication: Product used for unknown indication
     Dosage: 20 MG
     Route: 065

REACTIONS (11)
  - Drug withdrawal syndrome [Unknown]
  - Depersonalisation/derealisation disorder [Unknown]
  - Irritability [Unknown]
  - Apathy [Unknown]
  - Oral pain [Unknown]
  - Bruxism [Unknown]
  - Insomnia [Unknown]
  - Food craving [Unknown]
  - Myoclonus [Unknown]
  - Suicidal ideation [Unknown]
  - Neglect of personal appearance [Unknown]
